FAERS Safety Report 20327387 (Version 3)
Quarter: 2024Q4

REPORT INFORMATION
  Report Type: Spontaneous
  Country: IN (occurrence: IN)
  Receive Date: 20220112
  Receipt Date: 20241202
  Transmission Date: 20250115
  Serious: Yes (Death)
  Sender: PFIZER
  Company Number: IN-PFIZER INC-2020509143

PATIENT
  Age: 77 Year
  Sex: Male

DRUGS (4)
  1. CRIZOTINIB [Suspect]
     Active Substance: CRIZOTINIB
     Dosage: 250 MG, 2X/DAY (FOR 1 MONTH)
     Route: 048
     Dates: start: 20180227, end: 202112
  2. MEGESTROL ACETATE [Concomitant]
     Active Substance: MEGESTROL ACETATE
     Dosage: 160 MG, 1X/DAY (FOR 1 MONTH)
  3. ORAFER COMP [Concomitant]
     Dosage: UNK, 1X/DAY (FOR 1 MONTH)
  4. SUPRADYN ACTIVE [Concomitant]
     Dosage: UNK, 1X/DAY (FOR 1 MONTH)

REACTIONS (2)
  - Death [Fatal]
  - Neoplasm progression [Unknown]

NARRATIVE: CASE EVENT DATE: 20211201
